FAERS Safety Report 7832002-7 (Version None)
Quarter: 2011Q4

REPORT INFORMATION
  Report Type: 
  Country: None (occurrence: None)
  Receive Date: 20111021
  Receipt Date: 20111017
  Transmission Date: 20120403
  Serious: Yes (Death, Other)
  Sender: FDA-Public Use
  Company Number: CH-ROCHE-635589

PATIENT

DRUGS (1)
  1. MABTHERA [Suspect]
     Indication: B-CELL LYMPHOMA
     Dosage: ON DAY 1 AND DAY 8
     Route: 065

REACTIONS (5)
  - NEUTROPENIA [None]
  - THROMBOCYTOPENIA [None]
  - LEUKOPENIA [None]
  - NEUTROPENIC SEPSIS [None]
  - DEATH [None]
